FAERS Safety Report 5689164-X (Version None)
Quarter: 2008Q1

REPORT INFORMATION
  Report Type: 
  Country: None (occurrence: None)
  Receive Date: 20080331
  Receipt Date: 20080317
  Transmission Date: 20080703
  Serious: Yes (Other)
  Sender: FDA-Public Use
  Company Number: TW-PFIZER INC-2008025230

PATIENT
  Age: 41 Year
  Sex: Male

DRUGS (6)
  1. GABAPENTIN [Suspect]
     Indication: NEURALGIA
     Dosage: DAILY DOSE:1200MG
  2. IMIPRAMINE [Concomitant]
     Indication: NEURALGIA
     Dosage: DAILY DOSE:150MG
  3. IMIPRAMINE [Concomitant]
     Indication: DEPRESSED MOOD
  4. MORPHINE [Concomitant]
     Indication: NEURALGIA
  5. ACETAMINOPHEN [Concomitant]
     Indication: NEURALGIA
  6. NSAID'S [Concomitant]
     Indication: NEURALGIA

REACTIONS (10)
  - ALLODYNIA [None]
  - CHOREA [None]
  - DEPRESSED MOOD [None]
  - DRUG INEFFECTIVE [None]
  - DYSKINESIA [None]
  - HAEMANGIOMA [None]
  - HYPERAESTHESIA [None]
  - HYPOPERFUSION [None]
  - LOSS OF CONSCIOUSNESS [None]
  - NEURALGIA [None]
